FAERS Safety Report 20759768 (Version 2)
Quarter: 2022Q3

REPORT INFORMATION
  Report Type: Spontaneous
  Country: US (occurrence: US)
  Receive Date: 20220427
  Receipt Date: 20220823
  Transmission Date: 20221026
  Serious: No
  Sender: FDA-Public Use
  Company Number: US-PFIZER INC-202101561580

PATIENT
  Age: 74 Year
  Sex: Female

DRUGS (2)
  1. INSPRA [Suspect]
     Active Substance: EPLERENONE
     Dosage: 25 MG
  2. EPLERENONE [Suspect]
     Active Substance: EPLERENONE
     Dosage: 25 MG

REACTIONS (1)
  - Product prescribing error [Unknown]
